FAERS Safety Report 23036064 (Version 1)
Quarter: 2023Q4

REPORT INFORMATION
  Report Type: Spontaneous
  Country: CN (occurrence: CN)
  Receive Date: 20231006
  Receipt Date: 20231006
  Transmission Date: 20240109
  Serious: Yes (Hospitalization)
  Sender: FDA-Public Use
  Company Number: CN-SPECGX-T202301968

PATIENT
  Age: 72 Year
  Sex: Male
  Weight: 64 kg

DRUGS (5)
  1. TYLOX [Suspect]
     Active Substance: ACETAMINOPHEN\OXYCODONE HYDROCHLORIDE
     Indication: Chest pain
     Dosage: 1 DOSAGE FORM, TID
     Route: 048
     Dates: start: 20230804, end: 20230814
  2. DEXAMETHASONE [Suspect]
     Active Substance: DEXAMETHASONE
     Indication: Chemotherapy
     Dosage: UNK
     Route: 065
  3. BORTEZOMIB [Suspect]
     Active Substance: BORTEZOMIB
     Indication: Chemotherapy
     Dosage: UNK
     Route: 065
  4. CYCLOPHOSPHAMIDE [Suspect]
     Active Substance: CYCLOPHOSPHAMIDE
     Indication: Chemotherapy
     Dosage: UNK
     Route: 065
  5. METHYLPREDNISOLONE [Suspect]
     Active Substance: METHYLPREDNISOLONE
     Indication: Chemotherapy
     Dosage: 12 MILLIGRAM
     Route: 065
     Dates: start: 20230811

REACTIONS (13)
  - Delirium [Recovering/Resolving]
  - Condition aggravated [Recovering/Resolving]
  - Sensory level abnormal [Recovering/Resolving]
  - Aphasia [Recovering/Resolving]
  - Dyskinesia [Recovering/Resolving]
  - Parosmia [Recovering/Resolving]
  - Daydreaming [Recovering/Resolving]
  - Limb discomfort [Recovering/Resolving]
  - Fungal infection [Unknown]
  - Loss of consciousness [Recovering/Resolving]
  - Hallucination, visual [Recovering/Resolving]
  - Dizziness [Recovering/Resolving]
  - Confusional state [Recovering/Resolving]

NARRATIVE: CASE EVENT DATE: 20230809
